FAERS Safety Report 21187534 (Version 2)
Quarter: 2022Q4

REPORT INFORMATION
  Report Type: Report from Study
  Country: US (occurrence: US)
  Receive Date: 20220808
  Receipt Date: 20221021
  Transmission Date: 20230113
  Serious: Yes (Hospitalization, Other)
  Sender: FDA-Public Use
  Company Number: US-KARYOPHARM-2022KPT000886

PATIENT
  Age: 76 Year
  Sex: Female
  Weight: 62.5 kg

DRUGS (15)
  1. SELINEXOR [Suspect]
     Active Substance: SELINEXOR
     Indication: Plasma cell myeloma
     Dosage: 60 MG, WEEKLY ON DAYS 1, 8, 15 OF A 28 DAY CYCLE
     Route: 048
     Dates: start: 20220621, end: 20220802
  2. SELINEXOR [Suspect]
     Active Substance: SELINEXOR
     Dosage: 40 MG, WEEKLY
     Route: 048
     Dates: start: 20220824
  3. DARATUMUMAB [Suspect]
     Active Substance: DARATUMUMAB
     Indication: Plasma cell myeloma
     Dosage: 1800 MG, WEEKLY ON DAYS 1, 8, AND 15 OF A 28-DAY CYCLE
     Route: 058
     Dates: start: 20220621, end: 20220802
  4. DARATUMUMAB [Suspect]
     Active Substance: DARATUMUMAB
     Dosage: 1800 MG, WEEKLY ON DAYS 1, 8, AND 15 OF A 28-DAY CYCLE
     Route: 058
     Dates: start: 20220810
  5. LENALIDOMIDE [Suspect]
     Active Substance: LENALIDOMIDE
     Indication: Plasma cell myeloma
     Dosage: 10 MG, QD ON DAYS 1-21 OF A 28 DAY CYCLE
     Route: 048
     Dates: start: 20220621, end: 20220802
  6. LENALIDOMIDE [Suspect]
     Active Substance: LENALIDOMIDE
     Dosage: 10 MG, QD  ON DAYS 1-21 OF A 28 DAY CYCLE
     Route: 048
     Dates: start: 20220810
  7. DEXAMETHASONE [Suspect]
     Active Substance: DEXAMETHASONE
     Indication: Plasma cell myeloma
     Dosage: 20 MG, WEEKLY ON DAYS 1, 8, 15, AND 22 OF A 28 DAY CYCLE
     Route: 048
     Dates: start: 20220621, end: 20220802
  8. DEXAMETHASONE [Suspect]
     Active Substance: DEXAMETHASONE
     Dosage: 20 MG, WEEKLY ON DAYS 1, 8, 15, AND 22 OF A 28 DAY CYCLE
     Route: 048
     Dates: start: 20220810
  9. OLANZAPINE [Concomitant]
     Active Substance: OLANZAPINE
     Indication: Prophylaxis of nausea and vomiting
     Dosage: UNK, WEEKLY ON THE NIGHT OF SELINEXOR
     Route: 048
     Dates: start: 20220719
  10. COMPAZINE [Concomitant]
     Active Substance: PROCHLORPERAZINE MALEATE
     Indication: Nausea
     Dosage: 10 MG, PRN Q6HRS
     Route: 048
     Dates: start: 20220630
  11. ZOFRAN [Concomitant]
     Active Substance: ONDANSETRON HYDROCHLORIDE
     Indication: Nausea
     Dosage: 8 MG, PRN Q8HRS
     Route: 048
     Dates: start: 20220621
  12. TRAMADOL [Concomitant]
     Active Substance: TRAMADOL
     Indication: Back pain
     Dosage: 60 MG, Q6H PRN
     Route: 048
     Dates: start: 20220626
  13. ASPIRIN [Concomitant]
     Active Substance: ASPIRIN
     Indication: Thrombosis prophylaxis
     Dosage: 81 MG, QD
     Route: 048
     Dates: start: 20210617
  14. BENADRYL ALLERGY [Concomitant]
     Active Substance: DIPHENHYDRAMINE HYDROCHLORIDE
     Indication: Chemotherapy side effect prophylaxis
     Dosage: 25 MG, WEEKLY 1 HR PRIOR TO DARATUMUMAB INJECTION
     Route: 048
     Dates: start: 20220621
  15. ACETAMINOPHEN [Concomitant]
     Active Substance: ACETAMINOPHEN
     Indication: Chemotherapy side effect prophylaxis
     Dosage: 650 MG, WEEKLY 1 HR PRIOR TO DARATUMUMAB INJECTION
     Route: 048
     Dates: start: 20220621

REACTIONS (2)
  - Colitis [Recovered/Resolved]
  - Gastritis [Recovered/Resolved]

NARRATIVE: CASE EVENT DATE: 20220728
